FAERS Safety Report 7276619-X (Version None)
Quarter: 2011Q1

REPORT INFORMATION
  Report Type: 
  Country: None (occurrence: None)
  Receive Date: 20110204
  Receipt Date: 20101217
  Transmission Date: 20110831
  Serious: Yes (Hospitalization, Other)
  Sender: FDA-Public Use
  Company Number: US-BAYER-201025803NA

PATIENT
  Sex: Female

DRUGS (10)
  1. YASMIN [Suspect]
     Indication: PRODUCT USED FOR UNKNOWN INDICATION
     Route: 048
  2. CETIRIZINE HCL [Concomitant]
  3. UNKNOWN DRUG [Concomitant]
     Indication: HYPERSENSITIVITY
  4. CLARITIN [Concomitant]
  5. YAZ [Suspect]
     Indication: PRODUCT USED FOR UNKNOWN INDICATION
     Route: 048
     Dates: start: 20050101
  6. NASONEX [Concomitant]
  7. MULTI-VITAMIN [Concomitant]
  8. CONLUNETT [Concomitant]
     Dosage: IT WAS MENTIONED HAVE BEEN USED IN 2002
     Route: 048
  9. ORTHO-NOVUM [Concomitant]
     Dosage: IT WAS MENTIONED HAVE BEEN USED IN 2002
     Route: 048
  10. MICROGESTIN 1.5/30 [Concomitant]
     Dosage: MICROGESTIN 1/20 HAVE BEEN USED IN 2002
     Route: 048

REACTIONS (12)
  - CHOLELITHIASIS [None]
  - DIARRHOEA [None]
  - BILIARY COLIC [None]
  - GALLBLADDER POLYP [None]
  - NAUSEA [None]
  - DECREASED APPETITE [None]
  - ABDOMINAL PAIN LOWER [None]
  - ABDOMINAL PAIN UPPER [None]
  - VOMITING [None]
  - ABDOMINAL PAIN [None]
  - CHOLECYSTITIS CHRONIC [None]
  - GASTRITIS [None]
